FAERS Safety Report 13693696 (Version 2)
Quarter: 2017Q2

REPORT INFORMATION
  Report Type: Spontaneous
  Country: US (occurrence: US)
  Receive Date: 20170627
  Receipt Date: 20170629
  Transmission Date: 20170830
  Serious: Yes (Other)
  Sender: FDA-Public Use
  Company Number: US-ROCHE-1942170

PATIENT
  Sex: Female
  Weight: 73.8 kg

DRUGS (5)
  1. LABETALOL [Concomitant]
     Active Substance: LABETALOL\LABETALOL HYDROCHLORIDE
     Dosage: AS REQUIRED.
     Route: 065
  2. ASA [Concomitant]
     Active Substance: ASPIRIN
     Route: 048
     Dates: start: 20170517
  3. ACTIVASE [Suspect]
     Active Substance: ALTEPLASE
     Indication: CEREBROVASCULAR ACCIDENT
     Route: 042
     Dates: start: 20170514, end: 20170514
  4. NICARDIPINE [Concomitant]
     Active Substance: NICARDIPINE
     Dosage: Q6
     Route: 048
     Dates: start: 20170517
  5. HCTZ [Concomitant]
     Active Substance: HYDROCHLOROTHIAZIDE
     Route: 048

REACTIONS (2)
  - Product quality issue [Unknown]
  - Haemorrhagic transformation stroke [Recovered/Resolved with Sequelae]

NARRATIVE: CASE EVENT DATE: 20170515
